FAERS Safety Report 8846490 (Version 1)
Quarter: 2012Q4

REPORT INFORMATION
  Report Type: 
  Country: US (occurrence: US)
  Receive Date: 20121017
  Receipt Date: 20121017
  Transmission Date: 20130627
  Serious: No
  Sender: FDA-Public Use
  Company Number: US-GLAXOSMITHKLINE-A0951450A

PATIENT
  Age: 0 Year
  Sex: Male

DRUGS (3)
  1. CEFTIN [Suspect]
     Indication: SINUSITIS
     Dosage: 2.5ML Twice per day
     Route: 050
     Dates: start: 20111022
  2. ZANTAC [Concomitant]
  3. PREVACID [Concomitant]

REACTIONS (2)
  - Mucous stools [Not Recovered/Not Resolved]
  - Hypersensitivity [Not Recovered/Not Resolved]
